FAERS Safety Report 10925040 (Version 2)
Quarter: 2015Q2

REPORT INFORMATION
  Report Type: Spontaneous
  Country: US (occurrence: US)
  Receive Date: 20150318
  Receipt Date: 20150524
  Transmission Date: 20150821
  Serious: No
  Sender: FDA-Public Use
  Company Number: US-JNJFOC-20121001905

PATIENT
  Age: 71 Year
  Sex: Male

DRUGS (2)
  1. NIZORAL A-D [Suspect]
     Active Substance: KETOCONAZOLE
     Route: 061
  2. NIZORAL A-D [Suspect]
     Active Substance: KETOCONAZOLE
     Indication: SKIN LESION
     Dosage: ALITTLE SIZE OF QUARTER EVERY DAY
     Route: 061
     Dates: start: 20110102

REACTIONS (3)
  - Therapeutic response unexpected [Recovered/Resolved]
  - Product use issue [Not Recovered/Not Resolved]
  - Inappropriate schedule of drug administration [Not Recovered/Not Resolved]

NARRATIVE: CASE EVENT DATE: 20120102
